FAERS Safety Report 19278350 (Version 1)
Quarter: 2021Q2

REPORT INFORMATION
  Report Type: Report from Study
  Country: US (occurrence: US)
  Receive Date: 20210520
  Receipt Date: 20210520
  Transmission Date: 20210717
  Serious: Yes (Hospitalization, Other)
  Sender: FDA-Public Use
  Company Number: US-JNJFOC-20210452036

PATIENT
  Age: 54 Year
  Sex: Male
  Weight: 124 kg

DRUGS (14)
  1. NEURONTIN [Concomitant]
     Active Substance: GABAPENTIN
     Route: 048
  2. GLUCOPHAGE [Concomitant]
     Active Substance: METFORMIN HYDROCHLORIDE
  3. MACITENTAN [Suspect]
     Active Substance: MACITENTAN
     Indication: CARDIAC FAILURE
     Route: 048
     Dates: start: 20191231
  4. ACETAMINOPHEN. [Concomitant]
     Active Substance: ACETAMINOPHEN
     Indication: PAIN
     Route: 048
  5. HYDRALAZINE [Concomitant]
     Active Substance: HYDRALAZINE HYDROCHLORIDE
  6. ISORDIL [Concomitant]
     Active Substance: ISOSORBIDE DINITRATE
  7. PROAIR HFA [Concomitant]
     Active Substance: ALBUTEROL SULFATE
  8. NIZORAL [Concomitant]
     Active Substance: KETOCONAZOLE
     Route: 061
  9. LASIX [Concomitant]
     Active Substance: FUROSEMIDE
  10. OXYGEN. [Concomitant]
     Active Substance: OXYGEN
  11. COZAAR [Concomitant]
     Active Substance: LOSARTAN POTASSIUM
  12. MACITENTAN [Suspect]
     Active Substance: MACITENTAN
     Indication: PULMONARY VASCULAR DISORDER
  13. ASPIRIN. [Concomitant]
     Active Substance: ASPIRIN
  14. LIPITOR [Concomitant]
     Active Substance: ATORVASTATIN CALCIUM
     Indication: BLOOD CHOLESTEROL DECREASED

REACTIONS (2)
  - Pulmonary hypertension [Not Recovered/Not Resolved]
  - Abdominal incarcerated hernia [Not Recovered/Not Resolved]

NARRATIVE: CASE EVENT DATE: 20210412
